FAERS Safety Report 11692662 (Version 2)
Quarter: 2016Q1

REPORT INFORMATION
  Report Type: Report from Study
  Country: US (occurrence: US)
  Receive Date: 20151103
  Receipt Date: 20160104
  Transmission Date: 20160525
  Serious: Yes (Other)
  Sender: FDA-Public Use
  Company Number: PHEH2015US022340

PATIENT
  Sex: Female
  Weight: 83.5 kg

DRUGS (6)
  1. LETROZOL [Suspect]
     Active Substance: LETROZOLE
     Indication: BREAST CANCER
     Dosage: 25 MG, QD
     Route: 048
     Dates: start: 20140914, end: 20150409
  2. DENOSUMAB [Suspect]
     Active Substance: DENOSUMAB
     Indication: BREAST CANCER
     Dosage: 120 MG, QW4 (EVERY FOUR WEEKS)
     Route: 058
     Dates: start: 20121031, end: 20150404
  3. MEKINIST [Suspect]
     Active Substance: TRAMETINIB DIMETHYL SULFOXIDE
     Indication: BREAST CANCER STAGE IV
     Dosage: 2 MG, UNK
     Route: 048
     Dates: start: 20141009, end: 20150409
  4. EVEROLIMUS [Suspect]
     Active Substance: EVEROLIMUS
     Indication: BREAST CANCER STAGE IV
     Dosage: 5 MG, UNK
     Route: 048
     Dates: start: 20140925, end: 20150409
  5. DENOSUMAB [Suspect]
     Active Substance: DENOSUMAB
     Indication: METASTASES TO BONE
  6. CISPLATIN. [Suspect]
     Active Substance: CISPLATIN
     Indication: BREAST CANCER STAGE IV
     Dosage: 20 MG/M2, DAY 1, 8, 15
     Route: 042
     Dates: start: 20140918, end: 20150409

REACTIONS (2)
  - Metastases to bone [Unknown]
  - Malignant neoplasm progression [Unknown]
